FAERS Safety Report 8438692-2 (Version None)
Quarter: 2012Q2

REPORT INFORMATION
  Report Type: 
  Country: None (occurrence: None)
  Receive Date: 20120611
  Receipt Date: 20120611
  Transmission Date: 20120825
  Serious: Yes (Death)
  Sender: FDA-Public Use
  Company Number: None

PATIENT
  Sex: Female
  Weight: 63.6 kg

DRUGS (2)
  1. TEMOZOLOMIDE [Suspect]
     Indication: GLIOBLASTOMA
     Dosage: 250MG DAILY PO
     Route: 048
     Dates: start: 20120503, end: 20120521
  2. ABT-888 40MG ABBOTT LAB [Suspect]
     Indication: GLIOBLASTOMA
     Dosage: 40MG BID PO
     Route: 048
     Dates: start: 20120503, end: 20120521

REACTIONS (5)
  - PANCYTOPENIA [None]
  - SOMNOLENCE [None]
  - INCORRECT DOSE ADMINISTERED [None]
  - BACTERIAL TEST POSITIVE [None]
  - CHOLECYSTITIS ACUTE [None]
